FAERS Safety Report 4422523-1 (Version None)
Quarter: 2004Q3

REPORT INFORMATION
  Report Type: 
  Country: None (occurrence: None)
  Receive Date: 20040806
  Receipt Date: 20040728
  Transmission Date: 20050211
  Serious: Yes (Death)
  Sender: FDA-Public Use
  Company Number: US-JNJFOC-20040707923

PATIENT
  Sex: Female

DRUGS (2)
  1. NATRECOR [Suspect]
     Indication: CARDIAC FAILURE CONGESTIVE
     Dosage: INTRAVENOUS
     Route: 042
     Dates: start: 20040715
  2. BUMEX [Suspect]
     Indication: DIURETIC THERAPY

REACTIONS (4)
  - BLOOD POTASSIUM DECREASED [None]
  - DRUG INTERACTION [None]
  - HYPOTENSION [None]
  - MULTI-ORGAN FAILURE [None]
